FAERS Safety Report 6369779-6 (Version None)
Quarter: 2009Q3

REPORT INFORMATION
  Report Type: 
  Country: None (occurrence: None)
  Receive Date: 20090918
  Receipt Date: 20090903
  Transmission Date: 20100115
  Serious: Yes (Other)
  Sender: FDA-Public Use
  Company Number: A-US2007-18329

PATIENT
  Age: 68 Year
  Sex: Female

DRUGS (18)
  1. TRACLEER [Suspect]
     Indication: PULMONARY ARTERIAL HYPERTENSION
     Dosage: 125 MG, BID, 62.5 MG, BID, ORAL
     Route: 048
     Dates: start: 20070813, end: 20071101
  2. TRACLEER [Suspect]
     Indication: PULMONARY ARTERIAL HYPERTENSION
     Dosage: 125 MG, BID, 62.5 MG, BID, ORAL
     Route: 048
     Dates: start: 20071101, end: 20090717
  3. ALENDRONATE SODIUM [Concomitant]
  4. RISEDRONATE SODIUM [Concomitant]
  5. ERGOCALCIFEROL [Concomitant]
  6. NEURONTIN [Concomitant]
  7. MIRAPEX [Concomitant]
  8. TEGRETOL [Concomitant]
  9. CYMBALTA [Concomitant]
  10. DUONEB (SALBUTAMOL SULFATE, IPRATROPIUM BROMIDE) [Concomitant]
  11. WELLBUTRIN XL [Concomitant]
  12. CITRUCEL (METHYLCELLULOSE) [Concomitant]
  13. ASPIRIN [Concomitant]
  14. FUROSEMIDE [Concomitant]
  15. CELEBREX [Concomitant]
  16. NEXIUM [Concomitant]
  17. NITROGLYCERIN [Concomitant]
  18. SYNTHROID [Concomitant]

REACTIONS (7)
  - BILIARY CIRRHOSIS [None]
  - DYSPNOEA [None]
  - HAEMATOCRIT DECREASED [None]
  - INFLAMMATION [None]
  - IRON OVERLOAD [None]
  - OEDEMA PERIPHERAL [None]
  - STASIS DERMATITIS [None]
